FAERS Safety Report 6128055-7 (Version None)
Quarter: 2009Q1

REPORT INFORMATION
  Report Type: 
  Country: None (occurrence: None)
  Receive Date: 20090323
  Receipt Date: 20090311
  Transmission Date: 20090719
  Serious: Yes (Hospitalization, Other)
  Sender: FDA-Public Use
  Company Number: US-MERCK-0805USA00697

PATIENT
  Age: 58 Year
  Sex: Female
  Weight: 74 kg

DRUGS (3)
  1. FOSAMAX [Suspect]
     Indication: OSTEOPENIA
     Route: 048
     Dates: start: 19990101
  2. AREDIA [Suspect]
     Route: 065
     Dates: start: 20020601, end: 20020901
  3. ZOMETA [Suspect]
     Route: 065
     Dates: start: 20020901

REACTIONS (87)
  - ABDOMINAL DISCOMFORT [None]
  - ABDOMINAL PAIN [None]
  - ABDOMINAL PAIN UPPER [None]
  - ADVERSE DRUG REACTION [None]
  - ALLERGIC COUGH [None]
  - AMNESIA [None]
  - ANAEMIA [None]
  - ANKLE FRACTURE [None]
  - ANOREXIA [None]
  - ANXIETY [None]
  - ANXIETY DISORDER [None]
  - ARTHRALGIA [None]
  - ASTHMA [None]
  - BACK PAIN [None]
  - BACTERIAL TOXAEMIA [None]
  - BLADDER DISCOMFORT [None]
  - BRONCHIAL HYPERREACTIVITY [None]
  - BRONCHITIS [None]
  - CARDIAC FLUTTER [None]
  - CELLULITIS [None]
  - CHEST DISCOMFORT [None]
  - CHEST PAIN [None]
  - COLONIC POLYP [None]
  - CONSTIPATION [None]
  - COUGH [None]
  - DEEP VEIN THROMBOSIS [None]
  - DEPRESSION [None]
  - DIARRHOEA [None]
  - DIVERTICULUM INTESTINAL [None]
  - DRUG HYPERSENSITIVITY [None]
  - DYSPEPSIA [None]
  - DYSPNOEA [None]
  - DYSURIA [None]
  - FATIGUE [None]
  - GALLBLADDER DISORDER [None]
  - GASTRIC PH DECREASED [None]
  - GASTRITIS [None]
  - GASTROOESOPHAGEAL REFLUX DISEASE [None]
  - HIP FRACTURE [None]
  - HYPERSENSITIVITY [None]
  - HYPOAESTHESIA [None]
  - HYPOTHYROIDISM [None]
  - HYPOXIA [None]
  - INFLAMMATORY CARCINOMA OF THE BREAST [None]
  - INFLUENZA [None]
  - INTERSTITIAL LUNG DISEASE [None]
  - INTERVERTEBRAL DISC PROTRUSION [None]
  - IRON DEFICIENCY ANAEMIA [None]
  - KNEE OPERATION [None]
  - LEUKOPENIA [None]
  - LOBAR PNEUMONIA [None]
  - LYMPHOEDEMA [None]
  - MALAISE [None]
  - MIGRAINE [None]
  - MUSCLE SPASMS [None]
  - MUSCULOSKELETAL PAIN [None]
  - MYALGIA [None]
  - NASAL POLYPS [None]
  - NECK PAIN [None]
  - NEUROPATHY PERIPHERAL [None]
  - NEUTROPENIA [None]
  - NIGHTMARE [None]
  - OEDEMA PERIPHERAL [None]
  - OSTEOMYELITIS [None]
  - OSTEONECROSIS [None]
  - OSTEORADIONECROSIS [None]
  - PAIN [None]
  - PARAESTHESIA [None]
  - PELVIC PAIN [None]
  - POLLAKIURIA [None]
  - PROCEDURAL COMPLICATION [None]
  - PULMONARY FIBROSIS [None]
  - PYREXIA [None]
  - RASH [None]
  - RED BLOOD CELL SEDIMENTATION RATE INCREASED [None]
  - SEBORRHOEIC KERATOSIS [None]
  - SINUSITIS [None]
  - SKIN LESION [None]
  - SLEEP APNOEA SYNDROME [None]
  - SMALL CELL LUNG CANCER STAGE UNSPECIFIED [None]
  - STOMATITIS [None]
  - TOOTH ABSCESS [None]
  - TOOTH INFECTION [None]
  - URINARY TRACT INFECTION [None]
  - VITAMIN B12 DEFICIENCY [None]
  - VOMITING [None]
  - VULVOVAGINAL DRYNESS [None]
